FAERS Safety Report 8071985-X (Version None)
Quarter: 2012Q1

REPORT INFORMATION
  Report Type: 
  Country: None (occurrence: None)
  Receive Date: 20120119
  Receipt Date: 20120110
  Transmission Date: 20120608
  Serious: Yes (Life-Threatening, Hospitalization, Other)
  Sender: FDA-Public Use
  Company Number: AUR-APL-2011-06335

PATIENT
  Age: 52 Year
  Sex: Male

DRUGS (9)
  1. RAMIPRIL [Suspect]
     Indication: PRODUCT USED FOR UNKNOWN INDICATION
     Dosage: (140 MG, ONCE)
  2. ISOSORBIDE MONONITRATE [Suspect]
     Indication: PRODUCT USED FOR UNKNOWN INDICATION
     Dosage: (800 MG, ONCE)
  3. SIMVASTATIN [Concomitant]
  4. TAMSULOSIN HCL [Concomitant]
  5. CITALOPRAM HYDROBROMIDE [Concomitant]
  6. NICORANDIL (NICORANDIL) [Suspect]
     Indication: PRODUCT USED FOR UNKNOWN INDICATION
     Dosage: (120 MG, ONCE)
  7. OMEPRAZOLE [Concomitant]
  8. ASPIRIN [Concomitant]
  9. DILTIAZEM [Suspect]
     Indication: PRODUCT USED FOR UNKNOWN INDICATION
     Dosage: (3900 MG, ONCE)

REACTIONS (7)
  - TOXICITY TO VARIOUS AGENTS [None]
  - MULTIPLE DRUG OVERDOSE [None]
  - ANURIA [None]
  - NO THERAPEUTIC RESPONSE [None]
  - SOMNOLENCE [None]
  - BLOOD CREATININE INCREASED [None]
  - HYPOTENSION [None]
